FAERS Safety Report 9891611 (Version 1)
Quarter: 2014Q1

REPORT INFORMATION
  Report Type: Spontaneous
  Country: US (occurrence: None)
  Receive Date: 20140207
  Receipt Date: 20140207
  Transmission Date: 20141002
  Serious: Yes (Death)
  Sender: FDA-Public Use
  Company Number: SYM-2014-15398

PATIENT
  Age: 51 Year
  Sex: Female

DRUGS (5)
  1. DIAZEPAM [Suspect]
     Indication: PRODUCT USED FOR UNKNOWN INDICATION
     Route: 048
  2. MORPHINE [Suspect]
     Route: 048
  3. DEXTROMETHORPHAN [Suspect]
     Route: 048
  4. PROMETHAZINE (PROMETHAZINE) (PROMETHAZINE) [Suspect]
     Route: 048
  5. PAROXETINE (PAROXETINE) (PAROXETINE) [Suspect]
     Route: 048

REACTIONS (3)
  - Poisoning [None]
  - Exposure via ingestion [None]
  - Drug abuse [None]
